FAERS Safety Report 5215675-7 (Version None)
Quarter: 2007Q1

REPORT INFORMATION
  Report Type: 
  Country: None (occurrence: None)
  Receive Date: 20070123
  Receipt Date: 20070116
  Transmission Date: 20070707
  Serious: Yes (Other)
  Sender: FDA-Public Use
  Company Number: US-ROCHE-475278

PATIENT
  Age: 79 Year
  Sex: Male
  Weight: 86.6 kg

DRUGS (5)
  1. CAPECITABINE [Suspect]
     Indication: COLON CANCER
     Dosage: ADMINISTERED ON DAYS 1-14 IN A 21-DAY CYCLE.
     Route: 048
     Dates: start: 20031216, end: 20040525
  2. OXALIPLATIN [Suspect]
     Indication: COLON CANCER
     Dosage: ADMINISTERED ON DAY 1.
     Route: 042
     Dates: start: 20031216, end: 20040511
  3. GLUCOTROL XL [Concomitant]
     Dates: start: 20031216
  4. LOPRESSOR [Concomitant]
     Dates: start: 20031202
  5. 1 CONCOMITANT DRUG [Concomitant]
     Dosage: REPORTED AS BELATIN
     Dates: start: 20060307

REACTIONS (1)
  - CHRONIC MYELOMONOCYTIC LEUKAEMIA [None]
